FAERS Safety Report 9011883 (Version 1)
Quarter: 2012Q4

REPORT INFORMATION
  Report Type: Spontaneous
  Country: GB (occurrence: None)
  Receive Date: 20121228
  Receipt Date: 20121228
  Transmission Date: 20130627
  Serious: Yes (Hospitalization)
  Sender: FDA-Public Use
  Company Number: GER/UKI/12/0027191

PATIENT
  Age: 63 Year
  Sex: Male

DRUGS (25)
  1. CLOPIDOGREL (CLOPIDOGREL) [Suspect]
     Indication: PERIPHERAL VASCULAR DISEASE
     Route: 048
     Dates: end: 20121207
  2. DALTEPARIN [Suspect]
     Indication: VENOUS THROMBOEMBOLISM PROPHYLAXIS
     Route: 058
  3. ACTAVIS UK VITAMIN B COMPOUND (B-KOMPLEX) [Concomitant]
  4. AMITRIPTYLINE (AMITRIPTYLINE) [Concomitant]
  5. ATORVASTATIN (ATORVASTATIN) [Concomitant]
  6. CIPROFLOXACIN (CIPROFLOXACIN) [Concomitant]
  7. CLINDAMYCIN (CLINDAMYCIN) [Concomitant]
  8. CODEINE (CODEINE) [Concomitant]
  9. FUROSEMIDE (FUROSEMIDE) [Concomitant]
  10. GENTAMICIN (GENTAMICIN) [Concomitant]
  11. LACTULOSE (LACTULOSE) [Concomitant]
  12. LANSOPRAZOLE (LANSOPRAZOLE) [Concomitant]
  13. MEROPENEM (MEROPENEM) [Concomitant]
  14. METFORMIN (METFORMIN) [Concomitant]
  15. MULTI-VITAMIN PREPARATION (MULTI-VITAMINS VITAFIT) [Concomitant]
  16. NOVOMIX (NOVOMIX) [Concomitant]
  17. PARACETAMOL (PARACETAMOL) [Concomitant]
  18. PERINDOPRIL (PERINDOPRIL) [Concomitant]
  19. TAMSULOSIN (TAMSULOSIN) [Concomitant]
  20. TEICOPLANIN (TEICOPLANIN) [Concomitant]
  21. THIAMINE (THIAMINE) [Concomitant]
  22. TILDIEMLA (DILTIAZEM HYDROCHLORIDE) [Concomitant]
  23. TIOTROPIUM [Concomitant]
  24. TRAMADOL (TRAMADOL) [Concomitant]
  25. MORPHINE (MORPHINE) (UNKNOWN) (MORPHINE) [Concomitant]

REACTIONS (4)
  - Haematemesis [None]
  - Infrequent bowel movements [None]
  - Vomiting [None]
  - Haemoglobin decreased [None]
